FAERS Safety Report 7414472-1 (Version None)
Quarter: 2011Q2

REPORT INFORMATION
  Report Type: 
  Country: None (occurrence: None)
  Receive Date: 20110414
  Receipt Date: 20110404
  Transmission Date: 20111010
  Serious: Yes (Other)
  Sender: FDA-Public Use
  Company Number: US-JNJFOC-20110402588

PATIENT
  Sex: Female

DRUGS (1)
  1. DURAGESIC [Suspect]
     Indication: BACK PAIN
     Dosage: 100 PLUS 25UG/HR
     Route: 062

REACTIONS (4)
  - WITHDRAWAL SYNDROME [None]
  - INSOMNIA [None]
  - SUICIDAL IDEATION [None]
  - DRUG DOSE OMISSION [None]
